FAERS Safety Report 8334656 (Version 2)
Quarter: 2012Q4

REPORT INFORMATION
  Report Type: 
  Country: US (occurrence: US)
  Receive Date: 20120112
  Receipt Date: 20120913
  Transmission Date: 20130627
  Serious: Yes (Other)
  Sender: FDA-Public Use
  Company Number: PHEH2012US000627

PATIENT
  Sex: Male

DRUGS (5)
  1. GLEEVEC [Suspect]
     Indication: CHRONIC MYELOID LEUKAEMIA
     Dosage: 400 mg, daily
     Route: 048
  2. GLEEVEC [Suspect]
     Indication: CHROMOSOME ANALYSIS ABNORMAL
     Dosage: 400 mg, day
     Route: 048
     Dates: start: 20120615
  3. GLEEVEC [Suspect]
     Indication: ACUTE LYMPHOCYTIC LEUKAEMIA
  4. PROTONIX [Concomitant]
  5. ATOVAQUONE [Concomitant]

REACTIONS (16)
  - Thrombocytopenia [Recovered/Resolved]
  - Cystic lymphangioma [Unknown]
  - Non-alcoholic steatohepatitis [Unknown]
  - Liver function test abnormal [Unknown]
  - Transaminases increased [Not Recovered/Not Resolved]
  - Haemosiderosis [Unknown]
  - Pancytopenia [Unknown]
  - Balance disorder [Unknown]
  - Anal fistula [Recovered/Resolved]
  - Weight increased [Unknown]
  - Nausea [Unknown]
  - Weight decreased [Unknown]
  - Aspartate aminotransferase increased [None]
  - Alanine aminotransferase increased [None]
  - Hepatic steatosis [None]
  - Diarrhoea [None]
